FAERS Safety Report 11313461 (Version 2)
Quarter: 2015Q3

REPORT INFORMATION
  Report Type: Spontaneous
  Country: US (occurrence: US)
  Receive Date: 20150727
  Receipt Date: 20150817
  Transmission Date: 20151125
  Serious: No
  Sender: FDA-Public Use
  Company Number: US-PFIZER INC-2015236871

PATIENT
  Age: 69 Year
  Sex: Male

DRUGS (2)
  1. NADOLOL. [Suspect]
     Active Substance: NADOLOL
     Indication: HEART RATE IRREGULAR
     Dosage: 40 MG, 1X/DAY
     Dates: start: 201501
  2. BENICAR [Concomitant]
     Active Substance: OLMESARTAN MEDOXOMIL
     Dosage: 40 MG, UNK

REACTIONS (2)
  - Drug effect incomplete [Unknown]
  - Product colour issue [Unknown]

NARRATIVE: CASE EVENT DATE: 201501
